FAERS Safety Report 6893987-9 (Version None)
Quarter: 2010Q3

REPORT INFORMATION
  Report Type: 
  Country: None (occurrence: None)
  Receive Date: 20100802
  Receipt Date: 20100722
  Transmission Date: 20110219
  Serious: Yes (Death)
  Sender: FDA-Public Use
  Company Number: US-RANBAXY-2010US-36120

PATIENT

DRUGS (2)
  1. CALAN SR (VERAPAMIL) [Suspect]
     Indication: ILL-DEFINED DISORDER
     Dosage: UNK, UNK
     Route: 048
     Dates: start: 20040101
  2. TRANDOLAPRIL [Suspect]
     Indication: ILL-DEFINED DISORDER
     Dosage: UNK
     Route: 048
     Dates: start: 20040101, end: 20040101

REACTIONS (1)
  - COMPLETED SUICIDE [None]
